FAERS Safety Report 8589730-8 (Version None)
Quarter: 2012Q3

REPORT INFORMATION
  Report Type: 
  Country: None (occurrence: None)
  Receive Date: 20120813
  Receipt Date: 20120802
  Transmission Date: 20120928
  Serious: Yes (Other)
  Sender: FDA-Public Use
  Company Number: CN-ASTRAZENECA-2012SE55693

PATIENT
  Age: 22359 Day
  Sex: Female
  Weight: 61 kg

DRUGS (1)
  1. PRILOSEC [Suspect]
     Indication: ABDOMINAL PAIN
     Route: 048
     Dates: start: 20090920, end: 20090920

REACTIONS (2)
  - VERTIGO [None]
  - VISUAL IMPAIRMENT [None]
